FAERS Safety Report 4648839-1 (Version None)
Quarter: 2005Q2

REPORT INFORMATION
  Report Type: 
  Country: None (occurrence: None)
  Receive Date: 20050429
  Receipt Date: 20050119
  Transmission Date: 20051028
  Serious: Yes (Disabling)
  Sender: FDA-Public Use
  Company Number: US-MERCK-0501USA03262

PATIENT
  Age: 72 Year
  Sex: Female
  Weight: 60 kg

DRUGS (9)
  1. VIOXX [Suspect]
     Indication: ARTHRITIS
     Route: 048
     Dates: start: 20020401, end: 20041001
  2. VASOTEC [Concomitant]
     Route: 048
  3. DIOVAN [Concomitant]
     Route: 065
  4. NORVASC [Concomitant]
     Route: 065
     Dates: start: 20020101
  5. PREMARIN [Concomitant]
     Route: 065
     Dates: start: 20030101
  6. ZYRTEC [Concomitant]
     Route: 065
  7. PROZAC [Concomitant]
     Route: 065
  8. PROTONIX [Concomitant]
     Route: 065
  9. FIORICET TABLETS [Concomitant]
     Route: 065

REACTIONS (8)
  - BLOOD CHOLESTEROL INCREASED [None]
  - BLOOD PRESSURE INCREASED [None]
  - CARPAL TUNNEL SYNDROME [None]
  - CEREBROVASCULAR ACCIDENT [None]
  - DEPRESSION [None]
  - HEADACHE [None]
  - PAIN [None]
  - VENTRICULAR HYPERTROPHY [None]
